FAERS Safety Report 7974074-5 (Version None)
Quarter: 2011Q4

REPORT INFORMATION
  Report Type: 
  Country: None (occurrence: None)
  Receive Date: 20111213
  Receipt Date: 20111130
  Transmission Date: 20120403
  Serious: Yes (Other)
  Sender: FDA-Public Use
  Company Number: PL-ROCHE-1009651

PATIENT
  Sex: Female

DRUGS (4)
  1. RANIBIZUMAB [Suspect]
     Dosage: REGIMEN  2
     Route: 050
  2. AVASTIN [Suspect]
     Indication: AGE-RELATED MACULAR DEGENERATION
     Route: 050
     Dates: start: 20080101, end: 20100101
  3. RANIBIZUMAB [Suspect]
     Indication: AGE-RELATED MACULAR DEGENERATION
     Route: 050
     Dates: start: 20080101, end: 20100101
  4. RANIBIZUMAB [Suspect]
     Dosage: REGIMEN  3
     Route: 050

REACTIONS (3)
  - VISUAL ACUITY REDUCED [None]
  - RETINAL OEDEMA [None]
  - RETINAL PIGMENT EPITHELIAL TEAR [None]
